FAERS Safety Report 13400812 (Version 3)
Quarter: 2017Q2

REPORT INFORMATION
  Report Type: Spontaneous
  Country: CH (occurrence: CH)
  Receive Date: 20170404
  Receipt Date: 20170509
  Transmission Date: 20170830
  Serious: Yes (Hospitalization, Other)
  Sender: FDA-Public Use
  Company Number: CH-NOVOPROD-537711

PATIENT
  Age: 56 Year
  Sex: Male
  Weight: 81.5 kg

DRUGS (3)
  1. NOVORAPID [Suspect]
     Active Substance: INSULIN ASPART
     Indication: MONOGENIC DIABETES
     Dosage: UNK
     Route: 065
  2. NOVORAPID [Suspect]
     Active Substance: INSULIN ASPART
     Dosage: BOLUS DOSE WAS REDUCED BY 1/3
     Route: 065
  3. LEVEMIR [Concomitant]
     Active Substance: INSULIN DETEMIR
     Indication: MONOGENIC DIABETES
     Dosage: 2X 20 U (MORNING RESP. EVENING)
     Route: 065

REACTIONS (3)
  - Epilepsy [Recovered/Resolved]
  - Hypoglycaemia [Recovered/Resolved]
  - Device malfunction [Unknown]

NARRATIVE: CASE EVENT DATE: 20170304
